FAERS Safety Report 15980370 (Version 3)
Quarter: 2019Q1

REPORT INFORMATION
  Report Type: Report from Study
  Country: US (occurrence: US)
  Receive Date: 20190219
  Receipt Date: 20190220
  Transmission Date: 20190418
  Serious: Yes (Hospitalization, Other)
  Sender: FDA-Public Use
  Company Number: US-BAYER-2018-212109

PATIENT
  Age: 24 Year
  Sex: Male
  Weight: 90 kg

DRUGS (6)
  1. NEXAVAR [Suspect]
     Active Substance: SORAFENIB
     Indication: ACUTE MYELOID LEUKAEMIA RECURRENT
     Dosage: 400 MG, BID
     Route: 048
     Dates: start: 20180919, end: 20181112
  2. KEPPRA [Concomitant]
     Active Substance: LEVETIRACETAM
     Indication: SEIZURE
     Dosage: 2000 MG, BID
  3. NEXAVAR [Suspect]
     Active Substance: SORAFENIB
     Indication: ACUTE MYELOID LEUKAEMIA RECURRENT
     Dosage: UNK
     Dates: end: 20190113
  4. VENETOCLAX. [Concomitant]
     Active Substance: VENETOCLAX
     Dosage: UNK
     Dates: end: 20181112
  5. VENETOCLAX. [Concomitant]
     Active Substance: VENETOCLAX
     Dosage: UNK
     Dates: end: 20190113
  6. VENETOCLAX. [Concomitant]
     Active Substance: VENETOCLAX
     Dosage: UNK

REACTIONS (18)
  - Product dose omission [Unknown]
  - Product use in unapproved indication [None]
  - Pyrexia [Recovered/Resolved]
  - Blast cells present [None]
  - Off label use [None]
  - Asthenia [None]
  - Peripheral swelling [None]
  - Leukocytosis [Not Recovered/Not Resolved]
  - Sepsis [Recovered/Resolved]
  - Hepatic lesion [None]
  - Hepatic necrosis [Recovering/Resolving]
  - Cerebral haemorrhage [Recovering/Resolving]
  - Hypotension [Unknown]
  - Acute myeloid leukaemia [None]
  - Pancytopenia [None]
  - Diarrhoea [None]
  - Headache [Recovering/Resolving]
  - Pneumonia [None]

NARRATIVE: CASE EVENT DATE: 20181112
